FAERS Safety Report 8211581-4 (Version None)
Quarter: 2012Q1

REPORT INFORMATION
  Report Type: 
  Country: None (occurrence: None)
  Receive Date: 20120315
  Receipt Date: 20120307
  Transmission Date: 20120608
  Serious: Yes (Other)
  Sender: FDA-Public Use
  Company Number: DE-JNJFOC-20120214288

PATIENT
  Age: 44 Year
  Sex: Male

DRUGS (2)
  1. XEPLION [Suspect]
     Indication: PRODUCT USED FOR UNKNOWN INDICATION
     Route: 065
     Dates: start: 20110901
  2. XEPLION [Suspect]
     Route: 065

REACTIONS (3)
  - JAUNDICE [None]
  - PANCREATIC CARCINOMA [None]
  - HEPATITIS [None]
